FAERS Safety Report 20095190 (Version 2)
Quarter: 2022Q1

REPORT INFORMATION
  Report Type: Spontaneous
  Country: FR (occurrence: FR)
  Receive Date: 20211122
  Receipt Date: 20220122
  Transmission Date: 20220424
  Serious: Yes (Other)
  Sender: FDA-Public Use
  Company Number: FR-AMGEN-FRASP2021158942

PATIENT
  Age: 71 Year
  Sex: Male

DRUGS (2)
  1. PROLIA [Suspect]
     Active Substance: DENOSUMAB
     Indication: Osteoporosis
     Dosage: 60 MILLIGRAM, Q6MO
     Route: 058
     Dates: start: 201809
  2. PROLIA [Suspect]
     Active Substance: DENOSUMAB
     Indication: Osteoporosis postmenopausal

REACTIONS (2)
  - Pancreatitis [Recovered/Resolved]
  - Bladder cancer [Unknown]

NARRATIVE: CASE EVENT DATE: 20200101
